FAERS Safety Report 12777837 (Version 1)
Quarter: 2016Q3

REPORT INFORMATION
  Report Type: Spontaneous
  Country: US (occurrence: US)
  Receive Date: 20160924
  Receipt Date: 20160924
  Transmission Date: 20161109
  Serious: No
  Sender: FDA-Public Use
  Company Number: US-JAZZ-2016-US-010646

PATIENT
  Sex: Female

DRUGS (9)
  1. ADVIL [Concomitant]
     Active Substance: IBUPROFEN
  2. AMINO ACID [Concomitant]
     Active Substance: AMINO ACIDS
  3. XYREM [Suspect]
     Active Substance: SODIUM OXYBATE
     Indication: CATAPLEXY
     Dosage: 3 G, BID
     Route: 048
     Dates: start: 201604, end: 201604
  4. XYREM [Suspect]
     Active Substance: SODIUM OXYBATE
     Indication: NARCOLEPSY
     Dosage: 2.25 G, BID
     Route: 048
     Dates: start: 201603, end: 201604
  5. MULTIVITAMINS [Concomitant]
     Active Substance: VITAMINS
  6. FLONASE [Concomitant]
     Active Substance: FLUTICASONE PROPIONATE
  7. XYREM [Suspect]
     Active Substance: SODIUM OXYBATE
     Dosage: 2.25 G, BID
     Route: 048
     Dates: start: 201604
  8. ASTELIN [Concomitant]
     Active Substance: AZELASTINE HYDROCHLORIDE
  9. CLARITIN [Concomitant]
     Active Substance: LORATADINE

REACTIONS (1)
  - Feeling jittery [Not Recovered/Not Resolved]
